FAERS Safety Report 23455316 (Version 2)
Quarter: 2024Q1

REPORT INFORMATION
  Report Type: Spontaneous
  Country: US (occurrence: US)
  Receive Date: 20240130
  Receipt Date: 20240223
  Transmission Date: 20240410
  Serious: Yes (Hospitalization)
  Sender: FDA-Public Use
  Company Number: US-Vifor (International) Inc.-VIT-2024-00700

PATIENT
  Age: 54 Year
  Sex: Male
  Weight: 80.2 kg

DRUGS (1)
  1. MIRCERA [Suspect]
     Active Substance: METHOXY POLYETHYLENE GLYCOL-EPOETIN BETA
     Indication: Anaemia
     Dosage: 1ST DOSE
     Route: 042
     Dates: start: 20240117, end: 20240117

REACTIONS (8)
  - Drug hypersensitivity [Recovered/Resolved]
  - Feeling abnormal [Recovered/Resolved]
  - Hyperhidrosis [Recovered/Resolved]
  - Unresponsive to stimuli [Recovered/Resolved]
  - Foaming at mouth [Recovered/Resolved]
  - Somnolence [Recovered/Resolved]
  - Hypertrophic cardiomyopathy [Recovered/Resolved]
  - Blood pressure diastolic abnormal [Recovered/Resolved]

NARRATIVE: CASE EVENT DATE: 20240117
